FAERS Safety Report 4483388-5 (Version None)
Quarter: 2004Q4

REPORT INFORMATION
  Report Type: 
  Country: None (occurrence: None)
  Receive Date: 20041020
  Receipt Date: 20041014
  Transmission Date: 20050328
  Serious: Yes (Death, Hospitalization)
  Sender: FDA-Public Use
  Company Number: HQ1420229MAY2001

PATIENT
  Age: 67 Year
  Sex: Female

DRUGS (29)
  1. SIROLIMUS (SIROLIMUS, SOLUTION) [Suspect]
     Indication: RENAL TRANSPLANT
     Dosage: SEE IMAGE
     Route: 048
     Dates: start: 20010101, end: 20010712
  2. SIROLIMUS (SIROLIMUS, SOLUTION) [Suspect]
     Indication: RENAL TRANSPLANT
     Dosage: SEE IMAGE
     Route: 048
     Dates: start: 20010517, end: 20040712
  3. CYCLOSPORINE [Concomitant]
  4. CELLCEPT (MYCOPHENOLAE MOFETIL) [Concomitant]
  5. PREDNISONE [Concomitant]
  6. XANEF (ENALAPRIL MALEATE) [Concomitant]
  7. METOPROLOL SUCCINATE [Concomitant]
  8. MODIP (FELODIPINE) [Concomitant]
  9. LASIX [Concomitant]
  10. ATORVASTATIN CALCIUM [Concomitant]
  11. VIGANTOLETTEN (COLECALCIFEROL) [Concomitant]
  12. CALCIUM (CALCIUM) [Concomitant]
  13. PROTAPHANE MC (INSULIN INJECTION, ISOPHANE) [Concomitant]
  14. ACTRAPID HUMAN (INSULIN HUMAN) [Concomitant]
  15. VANCOMYCIN [Concomitant]
  16. METRONIDAZOLE [Concomitant]
  17. CONCOR (BISOPROLOL FUMARATE) [Concomitant]
  18. NOOTROP (PIRACETAM) [Concomitant]
  19. PANTOPRAZOL (PANTOPRAZOLE) [Concomitant]
  20. ELECTROCYTE SOLUTIONS (ELECTROLYTE SOLUTIONS) [Concomitant]
  21. PRAVASTATIN [Concomitant]
  22. ASPIRIN [Concomitant]
  23. MRONEM (MEROPENEM) [Concomitant]
  24. RENACOR (ENALAPRIL MALEATE/HYDROCHLOROTHIAZIDE) [Concomitant]
  25. TOREM (TORASEMIDE) [Concomitant]
  26. HEPARIN [Concomitant]
  27. NOVALGIN (METHAMIZOLE SODIUM) [Concomitant]
  28. GASTROZEPIN [Concomitant]
  29. NITRO (GLYCERYL TRINITRATE) [Concomitant]

REACTIONS (26)
  - ACIDOSIS [None]
  - ANAEMIA [None]
  - ASPARTATE AMINOTRANSFERASE INCREASED [None]
  - ATRIOVENTRICULAR BLOCK [None]
  - BLOOD ALKALINE PHOSPHATASE INCREASED [None]
  - BLOOD LACTATE DEHYDROGENASE INCREASED [None]
  - CANDIDIASIS [None]
  - CARDIAC ARREST [None]
  - CARDIAC FAILURE [None]
  - CEREBROVASCULAR ACCIDENT [None]
  - CHOLECYSTITIS [None]
  - COMA [None]
  - GENERAL PHYSICAL HEALTH DETERIORATION [None]
  - HYPOXIC ENCEPHALOPATHY [None]
  - LOWER RESPIRATORY TRACT INFECTION [None]
  - MELAENA [None]
  - MYOCARDIAL INFARCTION [None]
  - MYOCARDIAL ISCHAEMIA [None]
  - PNEUMONIA ASPIRATION [None]
  - POST PROCEDURAL COMPLICATION [None]
  - REFLUX OESOPHAGITIS [None]
  - RESPIRATORY FAILURE [None]
  - SHOCK [None]
  - SOMNOLENCE [None]
  - UNRESPONSIVE TO PAIN STIMULI [None]
  - URINARY TRACT INFECTION FUNGAL [None]
